FAERS Safety Report 6788901-0 (Version None)
Quarter: 2010Q2

REPORT INFORMATION
  Report Type: 
  Country: None (occurrence: None)
  Receive Date: 20100623
  Receipt Date: 20080529
  Transmission Date: 20101027
  Serious: No
  Sender: FDA-Public Use
  Company Number: US-PFIZER INC-2008046679

PATIENT
  Sex: Female
  Weight: 52.272 kg

DRUGS (2)
  1. DEPO-PROVERA SUSPENSION/INJ [Suspect]
     Indication: CONTRACEPTION
  2. IMITREX [Concomitant]
     Indication: MIGRAINE

REACTIONS (5)
  - CONDITION AGGRAVATED [None]
  - DRUG DISPENSING ERROR [None]
  - MIGRAINE [None]
  - SWELLING [None]
  - WEIGHT INCREASED [None]
